FAERS Safety Report 5195463-0 (Version None)
Quarter: 2006Q4

REPORT INFORMATION
  Report Type: 
  Country: None (occurrence: None)
  Receive Date: 20061230
  Receipt Date: 20061220
  Transmission Date: 20070319
  Serious: Yes (Hospitalization)
  Sender: FDA-Public Use
  Company Number: US-ABBOTT-06P-163-0354418-00

PATIENT
  Sex: Male
  Weight: 91.5 kg

DRUGS (2)
  1. BIAXIN [Suspect]
     Indication: INFLUENZA LIKE ILLNESS
     Route: 065
     Dates: start: 20061101, end: 20061101
  2. ACUTANE [Concomitant]
     Indication: DRUG USE FOR UNKNOWN INDICATION
     Dates: end: 20061101

REACTIONS (6)
  - EAR HAEMORRHAGE [None]
  - EPISTAXIS [None]
  - EYE HAEMORRHAGE [None]
  - LIP SWELLING [None]
  - STEVENS-JOHNSON SYNDROME [None]
  - SWOLLEN TONGUE [None]
